FAERS Safety Report 20859958 (Version 1)
Quarter: 2022Q2

REPORT INFORMATION
  Report Type: Report from Study
  Country: CA (occurrence: CA)
  Receive Date: 20220523
  Receipt Date: 20220523
  Transmission Date: 20220721
  Serious: Yes (Hospitalization, Other)
  Sender: FDA-Public Use
  Company Number: CA-BRISTOL-MYERS SQUIBB COMPANY-2022-015193

PATIENT
  Age: 77 Year
  Sex: Female
  Weight: 53 kg

DRUGS (1)
  1. REBLOZYL [Suspect]
     Active Substance: LUSPATERCEPT-AAMT
     Indication: Myelodysplastic syndrome
     Route: 058
     Dates: start: 20211102

REACTIONS (3)
  - Oxygen saturation decreased [Unknown]
  - Haemorrhage [Unknown]
  - Malignant neoplasm progression [Unknown]

NARRATIVE: CASE EVENT DATE: 20220414
